FAERS Safety Report 9288959 (Version 3)
Quarter: 2013Q3

REPORT INFORMATION
  Report Type: Spontaneous
  Country: CN (occurrence: CN)
  Receive Date: 20130514
  Receipt Date: 20130802
  Transmission Date: 20140515
  Serious: Yes (Hospitalization)
  Sender: FDA-Public Use
  Company Number: CN-GENZYME-CERZ-1002943

PATIENT
  Age: 13 Year
  Sex: Male
  Weight: 34 kg

DRUGS (5)
  1. CEREZYME [Suspect]
     Indication: GAUCHER^S DISEASE
     Dosage: UNK
     Route: 042
     Dates: start: 200507
  2. CEREZYME [Suspect]
     Dosage: 47.05 U/KG, Q4W
     Route: 042
     Dates: start: 200909
  3. CEREZYME [Suspect]
     Dosage: 58.82 U/KG (15 VIALS: 2/3 VIALS PER TWO WEEKS FOR 3 MONTHS), Q4W
     Route: 042
     Dates: start: 201209
  4. CEREZYME [Suspect]
     Dosage: 35.29 U/KG, Q4W
     Route: 042
     Dates: start: 201212, end: 201212
  5. CEREZYME [Suspect]
     Dosage: 6 VIALS PER MONTH 3 VIALS PER TWO WEEKS
     Route: 042
     Dates: start: 201304

REACTIONS (3)
  - Intra-abdominal haemorrhage [Recovered/Resolved]
  - Splenomegaly [Recovered/Resolved]
  - Inappropriate schedule of drug administration [Unknown]
